FAERS Safety Report 16805054 (Version 1)
Quarter: 2019Q3

REPORT INFORMATION
  Report Type: Spontaneous
  Country: US (occurrence: US)
  Receive Date: 20190724
  Receipt Date: 20190724
  Transmission Date: 20191005
  Serious: No
  Sender: FDA-Public Use
  Company Number: None

PATIENT

DRUGS (2)
  1. OMEPRAZOLE 40MG [Suspect]
     Active Substance: OMEPRAZOLE
  2. ESOMEPRAZOLE SODIUM 40MG [Suspect]
     Active Substance: ESOMEPRAZOLE SODIUM

REACTIONS (3)
  - Transcription medication error [None]
  - Product dispensing error [None]
  - Wrong product administered [None]
